FAERS Safety Report 4505520-7 (Version None)
Quarter: 2004Q4

REPORT INFORMATION
  Report Type: 
  Country: None (occurrence: None)
  Receive Date: 20041018
  Receipt Date: 20040816
  Transmission Date: 20050328
  Serious: No
  Sender: FDA-Public Use
  Company Number: 208113

PATIENT
  Age: 30 Year
  Sex: Female

DRUGS (8)
  1. XOLAIR [Suspect]
     Indication: ASTHMA
     Dosage: 150 MG, Q4W, SUBCUTANEOUS
     Route: 058
     Dates: start: 20040519
  2. ADVAIR DISKUS (SALMETEROL XINAFOATE, FLUTICASONE PROPIONATE) [Concomitant]
  3. FLONASE NASAL SPRAY (FLUTICASONEPROPIONATE) [Concomitant]
  4. ALBUTEROL INHALER (ALBUTEROL SULFATE, ALBUTEROL) [Concomitant]
  5. XOPENEX (LEVALBUTEROL HYDROCHLRORIDE) [Concomitant]
  6. NEXIUM [Concomitant]
  7. PROTONIX [Concomitant]
  8. SINGULAIR [Concomitant]

REACTIONS (1)
  - DRUG EXPOSURE DURING PREGNANCY [None]
